APPROVED DRUG PRODUCT: DOXYCYCLINE HYCLATE
Active Ingredient: DOXYCYCLINE HYCLATE
Strength: EQ 75MG BASE
Dosage Form/Route: TABLET;ORAL
Application: A211584 | Product #001 | TE Code: AB
Applicant: AJANTA PHARMA LTD
Approved: Jun 1, 2020 | RLD: No | RS: No | Type: RX